FAERS Safety Report 10179159 (Version 1)
Quarter: 2014Q2

REPORT INFORMATION
  Report Type: Spontaneous
  Country: US (occurrence: None)
  Receive Date: 20140425
  Receipt Date: 20140425
  Transmission Date: 20141212
  Serious: No
  Sender: FDA-Public Use
  Company Number: AP356-00345-SPO-US

PATIENT
  Age: 54 Year
  Sex: Female
  Weight: 91 kg

DRUGS (1)
  1. BELVIQ (LORCASERIN HYDROCHLORIDE) [Suspect]
     Indication: WEIGHT CONTROL
     Route: 048
     Dates: start: 20131227, end: 20131227

REACTIONS (7)
  - Ocular hyperaemia [None]
  - Ageusia [None]
  - Throat irritation [None]
  - Pain in jaw [None]
  - Vision blurred [None]
  - Chills [None]
  - Headache [None]
